FAERS Safety Report 25936275 (Version 2)
Quarter: 2025Q4

REPORT INFORMATION
  Report Type: Spontaneous
  Country: GB (occurrence: GB)
  Receive Date: 20251017
  Receipt Date: 20251022
  Transmission Date: 20260117
  Serious: Yes (Life-Threatening, Hospitalization, Other)
  Sender: ELI LILLY AND COMPANY
  Company Number: None

PATIENT
  Sex: Female

DRUGS (1)
  1. MOUNJARO [Suspect]
     Active Substance: TIRZEPATIDE
     Indication: Product used for unknown indication
     Dosage: UNK UNK, UNKNOWN
     Route: 065
     Dates: start: 20250611, end: 20250805

REACTIONS (5)
  - Complicated appendicitis [Recovered/Resolved with Sequelae]
  - Peritonitis [Unknown]
  - Infection [Unknown]
  - Constipation [Unknown]
  - Sepsis [Unknown]

NARRATIVE: CASE EVENT DATE: 20250806
